FAERS Safety Report 11304230 (Version 1)
Quarter: 2015Q3

REPORT INFORMATION
  Report Type: Spontaneous
  Country: US (occurrence: US)
  Receive Date: 20150723
  Receipt Date: 20150723
  Transmission Date: 20151125
  Serious: No
  Sender: FDA-Public Use
  Company Number: US-JNJFOC-20141206923

PATIENT
  Age: 48 Year
  Sex: Female
  Weight: 72.58 kg

DRUGS (1)
  1. PEPCID [Suspect]
     Active Substance: FAMOTIDINE
     Indication: HERNIA REPAIR
     Route: 042

REACTIONS (5)
  - Product use issue [Unknown]
  - Incorrect route of drug administration [Unknown]
  - Urticaria [Recovered/Resolved]
  - Application site erythema [Recovered/Resolved]
  - Drug hypersensitivity [Recovered/Resolved]
